FAERS Safety Report 24856714 (Version 1)
Quarter: 2025Q1

REPORT INFORMATION
  Report Type: Spontaneous
  Country: CN (occurrence: CN)
  Receive Date: 20250117
  Receipt Date: 20250117
  Transmission Date: 20250409
  Serious: Yes (Other)
  Sender: MERCK
  Company Number: CN-009507513-2501CHN002776

PATIENT
  Age: 56 Year
  Sex: Male

DRUGS (2)
  1. PEMBROLIZUMAB [Suspect]
     Active Substance: PEMBROLIZUMAB
     Indication: Malignant neoplasm of thorax
     Dosage: 200 MILLIGRAM, Q3W, TOTAL 46 CYCLES
     Route: 065
     Dates: start: 202104, end: 202410
  2. CATEQUENTINIB [Suspect]
     Active Substance: CATEQUENTINIB
     Indication: Malignant neoplasm of thorax
     Route: 065
     Dates: start: 202104, end: 202410

REACTIONS (7)
  - Arteriosclerosis coronary artery [Unknown]
  - Angina unstable [Unknown]
  - Hypothyroidism [Unknown]
  - Rash pruritic [Unknown]
  - Hypertension [Unknown]
  - Secondary adrenocortical insufficiency [Unknown]
  - Off label use [Unknown]

NARRATIVE: CASE EVENT DATE: 20210101
